FAERS Safety Report 6710610-4 (Version None)
Quarter: 2010Q2

REPORT INFORMATION
  Report Type: 
  Country: None (occurrence: None)
  Receive Date: 20100504
  Receipt Date: 20100427
  Transmission Date: 20101027
  Serious: Yes (Hospitalization)
  Sender: FDA-Public Use
  Company Number: US-GENENTECH-301177

PATIENT
  Age: 61 Year
  Sex: Male

DRUGS (5)
  1. RITUXAN [Suspect]
     Indication: MANTLE CELL LYMPHOMA
     Dosage: UNK
     Route: 065
     Dates: start: 20100421
  2. CYCLOPHOSPHAMIDE [Suspect]
     Indication: MANTLE CELL LYMPHOMA
     Dosage: UNK
     Route: 065
     Dates: start: 20100422
  3. VINCRISTINE [Suspect]
     Indication: MANTLE CELL LYMPHOMA
     Dosage: UNK
     Route: 065
     Dates: start: 20100422
  4. DOXORUBICIN HCL [Suspect]
     Indication: MANTLE CELL LYMPHOMA
     Dosage: UNK
     Route: 065
     Dates: start: 20100422
  5. PREDNISOLONE [Suspect]
     Indication: MANTLE CELL LYMPHOMA
     Dosage: UNK
     Route: 065
     Dates: start: 20100422

REACTIONS (3)
  - HAEMOPTYSIS [None]
  - INTERSTITIAL LUNG DISEASE [None]
  - RESPIRATORY DISTRESS [None]
